FAERS Safety Report 8692844 (Version 6)
Quarter: 2013Q3

REPORT INFORMATION
  Report Type: Report from Study
  Country: US (occurrence: US)
  Receive Date: 20120730
  Receipt Date: 20130711
  Transmission Date: 20140515
  Serious: Yes (Other)
  Sender: FDA-Public Use
  Company Number: US-ELI_LILLY_AND_COMPANY-US201207003173

PATIENT
  Age: 58 Year
  Sex: Female
  Weight: 38.55 kg

DRUGS (3)
  1. TERIPARATIDE [Suspect]
     Indication: OSTEOPOROSIS
     Dosage: 20 UG, QD
     Route: 058
     Dates: start: 201206, end: 20120717
  2. TERIPARATIDE [Suspect]
     Dosage: 20 UG, QD
     Route: 058
     Dates: start: 20120922
  3. TERIPARATIDE [Suspect]
     Dosage: 20 UG, QD
     Route: 058
     Dates: start: 20120529, end: 20130529

REACTIONS (14)
  - Rectal haemorrhage [Recovering/Resolving]
  - Haemorrhage [Unknown]
  - Gastrointestinal haemorrhage [Unknown]
  - Migraine [Unknown]
  - Vascular injury [Unknown]
  - Fatigue [Unknown]
  - Injection site haemorrhage [Recovering/Resolving]
  - Injection site erythema [Unknown]
  - Insomnia [Unknown]
  - Headache [Unknown]
  - Contusion [Recovering/Resolving]
  - Weight decreased [Recovering/Resolving]
  - Haemorrhoids [Unknown]
  - Osteonecrosis of jaw [Not Recovered/Not Resolved]
